FAERS Safety Report 7533984-3 (Version None)
Quarter: 2011Q2

REPORT INFORMATION
  Report Type: 
  Country: None (occurrence: None)
  Receive Date: 20110608
  Receipt Date: 20060718
  Transmission Date: 20111010
  Serious: Yes (Other)
  Sender: FDA-Public Use
  Company Number: PHHO2006SV11967

PATIENT
  Sex: Male
  Weight: 60 kg

DRUGS (1)
  1. GLEEVEC [Suspect]
     Indication: CHRONIC MYELOID LEUKAEMIA
     Dosage: 600 MG, QD
     Route: 048
     Dates: start: 20031101, end: 20060210

REACTIONS (2)
  - DRUG RESISTANCE [None]
  - NEOPLASM MALIGNANT [None]
